FAERS Safety Report 18338314 (Version 1)
Quarter: 2020Q4

REPORT INFORMATION
  Report Type: Spontaneous
  Country: CA (occurrence: CA)
  Receive Date: 20201002
  Receipt Date: 20201002
  Transmission Date: 20210113
  Serious: Yes (Other)
  Sender: FDA-Public Use
  Company Number: CA-TEVA-2020-CA-1834010

PATIENT
  Sex: Female

DRUGS (4)
  1. CICLOSPORIN [Suspect]
     Active Substance: CYCLOSPORINE
     Indication: BONE MARROW TRANSPLANT
     Dosage: 100 MILLIGRAM DAILY;
     Route: 065
  2. PREDNISONE. [Concomitant]
     Active Substance: PREDNISONE
     Indication: PRODUCT USED FOR UNKNOWN INDICATION
     Route: 065
  3. CICLOSPORIN [Suspect]
     Active Substance: CYCLOSPORINE
     Indication: SCLERODERMA
  4. CICLOSPORIN [Suspect]
     Active Substance: CYCLOSPORINE
     Indication: GRAFT VERSUS HOST DISEASE

REACTIONS (4)
  - Therapeutic response decreased [Not Recovered/Not Resolved]
  - Chronic graft versus host disease oral [Not Recovered/Not Resolved]
  - Disease progression [Not Recovered/Not Resolved]
  - Graft versus host disease in skin [Not Recovered/Not Resolved]
